FAERS Safety Report 4538247-6 (Version None)
Quarter: 2004Q4

REPORT INFORMATION
  Report Type: 
  Country: None (occurrence: None)
  Receive Date: 20041221
  Receipt Date: 20041207
  Transmission Date: 20050328
  Serious: Yes (Hospitalization)
  Sender: FDA-Public Use
  Company Number: 210931

PATIENT
  Age: 64 Year
  Sex: Male

DRUGS (1)
  1. RAPTIVA (EFALIZUMAB0 PWDR + SOLVENT, INJECTION SOLN, 125 MG [Suspect]
     Indication: PSORIASIS
     Dosage: 1 MG/KG, 1/WEEK, SUBCUTANEOUS
     Route: 058
     Dates: start: 20041029

REACTIONS (10)
  - ALANINE AMINOTRANSFERASE INCREASED [None]
  - ASPARTATE AMINOTRANSFERASE INCREASED [None]
  - BLOOD ALKALINE PHOSPHATASE INCREASED [None]
  - EXANTHEM [None]
  - GAMMA-GLUTAMYLTRANSFERASE INCREASED [None]
  - HEPATIC ENZYME INCREASED [None]
  - ICHTHYOSIS ACQUIRED [None]
  - JAUNDICE [None]
  - LEUKOCYTOSIS [None]
  - PLATELET COUNT INCREASED [None]
